FAERS Safety Report 9361304 (Version 1)
Quarter: 2013Q2

REPORT INFORMATION
  Report Type: Spontaneous
  Country: US (occurrence: US)
  Receive Date: 20130621
  Receipt Date: 20130621
  Transmission Date: 20140414
  Serious: Yes (Hospitalization, Other)
  Sender: FDA-Public Use
  Company Number: US-B.I. PHARMACEUTICALS,INC./RIDGEFIELD-2013-BI-17474BP

PATIENT
  Age: 86 Year
  Sex: Female

DRUGS (3)
  1. PRADAXA [Suspect]
     Indication: PROPHYLAXIS
     Dosage: 300 MG
     Route: 048
     Dates: start: 201108
  2. PRADAXA [Suspect]
     Indication: ATRIAL FIBRILLATION
  3. PACERONE [Concomitant]
     Indication: ATRIAL FIBRILLATION
     Dates: start: 201101, end: 201108

REACTIONS (6)
  - Basal cell carcinoma [Recovered/Resolved]
  - Dyspnoea [Recovered/Resolved]
  - Atrial fibrillation [Recovered/Resolved]
  - Device malfunction [Unknown]
  - Incision site haemorrhage [Recovered/Resolved]
  - Coronary artery embolism [Recovered/Resolved]
